FAERS Safety Report 8453041-1 (Version None)
Quarter: 2012Q2

REPORT INFORMATION
  Report Type: 
  Country: None (occurrence: None)
  Receive Date: 20120620
  Receipt Date: 20120505
  Transmission Date: 20120825
  Serious: No
  Sender: FDA-Public Use
  Company Number: US-VERTEX PHARMACEUTICALS INC.-AE-2012-006530

PATIENT
  Sex: Male

DRUGS (5)
  1. PEGINTERFERON ALFA-2A [Concomitant]
     Indication: HEPATITIS C
     Route: 058
     Dates: start: 20120429
  2. INCIVEK [Suspect]
     Indication: HEPATITIS C
     Route: 048
     Dates: start: 20120429
  3. MIRALAX [Concomitant]
     Indication: CONSTIPATION
     Dates: start: 20120502
  4. BENEFIBER [Concomitant]
     Indication: CONSTIPATION
     Dates: start: 20120502
  5. RIBAVIRIN [Concomitant]
     Indication: HEPATITIS C
     Route: 048
     Dates: start: 20120429

REACTIONS (3)
  - HAEMORRHOIDS [None]
  - OCULAR ICTERUS [None]
  - DIARRHOEA [None]
